FAERS Safety Report 14794969 (Version 1)
Quarter: 2018Q2

REPORT INFORMATION
  Report Type: Spontaneous
  Country: CA (occurrence: CA)
  Receive Date: 20180423
  Receipt Date: 20180423
  Transmission Date: 20180711
  Serious: Yes (Hospitalization)
  Sender: FDA-Public Use
  Company Number: CA-IMPAX LABORATORIES, INC-2018-IPXL-01264

PATIENT
  Age: 70 Year
  Sex: Male

DRUGS (6)
  1. CARBIDOPA-LEVODOPA ER [Suspect]
     Active Substance: CARBIDOPA\LEVODOPA
     Indication: PARKINSON^S DISEASE
     Dosage: 100/25 MG, TOTAL DAILY DOSE OF LEVODOPA 1,200MG AND CARBIDOPA 300MG
     Route: 065
  2. CARBIDOPA-LEVODOPA ER [Suspect]
     Active Substance: CARBIDOPA\LEVODOPA
     Dosage: 100/10MG, CARBIDOPA 130MG/DAY AND LEVODOPA 1,000 MG/DAY
     Route: 065
  3. CARBIDOPA-LEVODOPA ER [Suspect]
     Active Substance: CARBIDOPA\LEVODOPA
     Dosage: 100/10MG, CARBIDOPA 130MG/DAY AND LEVODOPA 1,200 MG/DAY
     Route: 065
  4. MIDODRINE HYDROCHLORIDE. [Suspect]
     Active Substance: MIDODRINE HYDROCHLORIDE
     Indication: ORTHOSTATIC HYPOTENSION
     Dosage: 10 MG, THREE TIMES A DAY
     Route: 065
  5. FLUDROCORTISONE ACETATE. [Suspect]
     Active Substance: FLUDROCORTISONE ACETATE
     Indication: PRODUCT USE IN UNAPPROVED INDICATION
  6. FLUDROCORTISONE ACETATE. [Suspect]
     Active Substance: FLUDROCORTISONE ACETATE
     Indication: ORTHOSTATIC HYPOTENSION
     Dosage: 0.2 MG, DAILY
     Route: 065

REACTIONS (15)
  - Bradykinesia [Unknown]
  - Suicide attempt [Recovered/Resolved]
  - Cogwheel rigidity [Unknown]
  - Delirium [Unknown]
  - Drug ineffective for unapproved indication [Unknown]
  - Insomnia [Recovered/Resolved]
  - Orthostatic hypotension [Recovering/Resolving]
  - Constipation [Recovered/Resolved]
  - Motor dysfunction [Recovered/Resolved]
  - Hallucination [Recovered/Resolved]
  - Confusional state [Unknown]
  - Drug ineffective [Unknown]
  - Fall [Unknown]
  - Anxiety [Recovered/Resolved]
  - Muscle rigidity [Unknown]
